FAERS Safety Report 6400044-4 (Version None)
Quarter: 2009Q4

REPORT INFORMATION
  Report Type: 
  Country: None (occurrence: None)
  Receive Date: 20091014
  Receipt Date: 20091006
  Transmission Date: 20100525
  Serious: Yes (Death, Hospitalization)
  Sender: FDA-Public Use
  Company Number: A0789822A

PATIENT
  Age: 29 Year
  Sex: Male

DRUGS (1)
  1. AVANDAMET [Suspect]
     Route: 048
     Dates: start: 20060629, end: 20080505

REACTIONS (3)
  - ARRHYTHMIA [None]
  - HYPERTENSIVE HEART DISEASE [None]
  - MYOCARDIAL ISCHAEMIA [None]
